FAERS Safety Report 7556221-2 (Version None)
Quarter: 2011Q2

REPORT INFORMATION
  Report Type: 
  Country: None (occurrence: None)
  Receive Date: 20110615
  Receipt Date: 20110615
  Transmission Date: 20111010
  Serious: Yes (Life-Threatening)
  Sender: FDA-Public Use
  Company Number: None

PATIENT
  Age: 53 Year
  Sex: Female
  Weight: 81.6475 kg

DRUGS (1)
  1. METHADONE HCL [Suspect]
     Indication: DRUG ABUSE
     Dosage: 150 MG DAILY PO
     Route: 048
     Dates: start: 20050101, end: 20110614

REACTIONS (2)
  - VENTRICULAR TACHYCARDIA [None]
  - TORSADE DE POINTES [None]
